APPROVED DRUG PRODUCT: BUMEX
Active Ingredient: BUMETANIDE
Strength: 1MG **Federal Register determination that product was not discontinued or withdrawn for safety or effectiveness reasons**
Dosage Form/Route: TABLET;ORAL
Application: N018225 | Product #001 | TE Code: AB
Applicant: VALIDUS PHARMACEUTICALS LLC
Approved: Feb 28, 1983 | RLD: Yes | RS: No | Type: RX